FAERS Safety Report 16799552 (Version 1)
Quarter: 2019Q3

REPORT INFORMATION
  Report Type: Spontaneous
  Country: PT (occurrence: PT)
  Receive Date: 20190912
  Receipt Date: 20190912
  Transmission Date: 20191005
  Serious: Yes (Other)
  Sender: FDA-Public Use
  Company Number: PT-ACCORD-154732

PATIENT
  Age: 77 Year
  Weight: 88 kg

DRUGS (7)
  1. EPLERENONE. [Suspect]
     Active Substance: EPLERENONE
     Indication: CHRONIC KIDNEY DISEASE
     Dosage: 25 MG / DAY
     Route: 048
     Dates: start: 20190730, end: 20190827
  2. LASIX [Concomitant]
     Active Substance: FUROSEMIDE
  3. ZANIDIP [Concomitant]
     Active Substance: LERCANIDIPINE HYDROCHLORIDE
  4. ATORVASTATIN [Concomitant]
     Active Substance: ATORVASTATIN
  5. OLMETEC [Concomitant]
     Active Substance: OLMESARTAN MEDOXOMIL
     Dosage: STRENGTH 20 MG
  6. ALFUZOSIN [Concomitant]
     Active Substance: ALFUZOSIN
  7. VILDAGLIPTIN [Concomitant]
     Active Substance: VILDAGLIPTIN

REACTIONS (1)
  - Hypotension [Recovered/Resolved]

NARRATIVE: CASE EVENT DATE: 20190804
